FAERS Safety Report 7014878-9 (Version None)
Quarter: 2010Q3

REPORT INFORMATION
  Report Type: 
  Country: None (occurrence: None)
  Receive Date: 20100927
  Receipt Date: 20091016
  Transmission Date: 20110219
  Serious: No
  Sender: FDA-Public Use
  Company Number: US-ASTRAZENECA-2009SE20782

PATIENT
  Age: 773 Month
  Sex: Female
  Weight: 63.5 kg

DRUGS (4)
  1. ARIMIDEX [Suspect]
     Indication: BREAST CANCER
     Route: 048
     Dates: start: 20060101
  2. CRESTOR [Concomitant]
  3. BONIVA [Concomitant]
  4. BENICAR [Concomitant]

REACTIONS (3)
  - HOT FLUSH [None]
  - MIGRAINE [None]
  - WEIGHT INCREASED [None]
